FAERS Safety Report 10145938 (Version 2)
Quarter: 2014Q3

REPORT INFORMATION
  Report Type: Spontaneous
  Country: PL (occurrence: PL)
  Receive Date: 20140501
  Receipt Date: 20140717
  Transmission Date: 20150326
  Serious: Yes (Death, Life-Threatening, Hospitalization)
  Sender: FDA-Public Use
  Company Number: PHHY2014PL051655

PATIENT
  Age: 62 Year
  Sex: Male

DRUGS (2)
  1. TEGRETOL [Suspect]
     Active Substance: CARBAMAZEPINE
     Indication: EPILEPSY
  2. TEGRETOL [Suspect]
     Active Substance: CARBAMAZEPINE
     Indication: GLIOMA
     Dosage: 400 MG, BID
     Route: 048
     Dates: start: 201305, end: 201307

REACTIONS (14)
  - Hyperaemia [Recovered/Resolved]
  - Dehydration [Recovered/Resolved]
  - Nikolsky^s sign [Unknown]
  - Pyrexia [Recovered/Resolved]
  - Rash erythematous [Unknown]
  - Conjunctivitis [Recovered/Resolved]
  - Staphylococcal bacteraemia [Recovered/Resolved]
  - Stevens-Johnson syndrome [Recovered/Resolved]
  - Mucosal haemorrhage [Recovered/Resolved]
  - Sepsis [Recovered/Resolved]
  - Erythema [Recovered/Resolved]
  - Toxic epidermal necrolysis [Recovered/Resolved]
  - Blister [Recovered/Resolved]
  - Astrocytoma malignant [Fatal]

NARRATIVE: CASE EVENT DATE: 20130706
